FAERS Safety Report 7330094-5 (Version None)
Quarter: 2011Q1

REPORT INFORMATION
  Report Type: 
  Country: None (occurrence: None)
  Receive Date: 20110303
  Receipt Date: 20110221
  Transmission Date: 20110831
  Serious: Yes (Hospitalization, Disabling, Other)
  Sender: FDA-Public Use
  Company Number: US-ELI_LILLY_AND_COMPANY-US201102005949

PATIENT
  Sex: Female

DRUGS (1)
  1. FORTEO [Suspect]
     Indication: OSTEOPOROSIS
     Dosage: 20 UG, DAILY (1/D)

REACTIONS (9)
  - LETHARGY [None]
  - SOMNOLENCE [None]
  - MUSCULAR WEAKNESS [None]
  - DEMENTIA [None]
  - COUGH [None]
  - GENERAL PHYSICAL HEALTH DETERIORATION [None]
  - HYPOTONIA [None]
  - GAIT DISTURBANCE [None]
  - BREATH SOUNDS ABNORMAL [None]
